FAERS Safety Report 6672141-X (Version None)
Quarter: 2010Q2

REPORT INFORMATION
  Report Type: 
  Country: None (occurrence: None)
  Receive Date: 20100407
  Receipt Date: 20100407
  Transmission Date: 20101027
  Serious: No
  Sender: FDA-Public Use
  Company Number: None

PATIENT
  Age: 62 Year
  Sex: Female
  Weight: 95.2554 kg

DRUGS (1)
  1. PERINDOPRIL ERBUMINE [Suspect]
     Indication: HYPERTENSION
     Dosage: 1/2 TAB 2 TIMES A DAY PO
     Route: 048
     Dates: start: 20100203, end: 20100406

REACTIONS (4)
  - FEELING OF BODY TEMPERATURE CHANGE [None]
  - PAIN IN JAW [None]
  - PRODUCT SUBSTITUTION ISSUE [None]
  - SINUS DISORDER [None]
